FAERS Safety Report 12964429 (Version 1)
Quarter: 2016Q4

REPORT INFORMATION
  Report Type: Spontaneous
  Country: GB (occurrence: GB)
  Receive Date: 20161122
  Receipt Date: 20161122
  Transmission Date: 20170207
  Serious: Yes (Hospitalization, Other)
  Sender: FDA-Public Use
  Company Number: GB-GALDERMA-GB16007658

PATIENT
  Age: 55 Year
  Sex: Male

DRUGS (5)
  1. ACITRETIN. [Concomitant]
     Active Substance: ACITRETIN
     Indication: PSORIASIS
  2. SILKIS [Suspect]
     Active Substance: CALCITRIOL
     Indication: PSORIASIS
     Route: 061
  3. ETORICOXIB [Concomitant]
     Active Substance: ETORICOXIB
     Indication: ARTHRALGIA
  4. ORAL CALCIUM AND VITAMIN D3 [Interacting]
     Active Substance: CALCIUM\CHOLECALCIFEROL
     Indication: BONE DISORDER
  5. ETANERCEPT [Concomitant]
     Active Substance: ETANERCEPT
     Indication: PSORIASIS

REACTIONS (6)
  - Overdose [Recovered/Resolved]
  - Hypercalcaemia [Recovered/Resolved]
  - Lethargy [Recovered/Resolved]
  - Incorrect dose administered [Recovered/Resolved]
  - Renal failure [Recovered/Resolved]
  - Thirst [Recovered/Resolved]
